FAERS Safety Report 13753111 (Version 1)
Quarter: 2017Q3

REPORT INFORMATION
  Report Type: Spontaneous
  Country: US (occurrence: US)
  Receive Date: 20170713
  Receipt Date: 20170713
  Transmission Date: 20171127
  Serious: Yes (Other)
  Sender: FDA-Public Use
  Company Number: None

PATIENT

DRUGS (1)
  1. PROTONIX [Suspect]
     Active Substance: PANTOPRAZOLE SODIUM
     Route: 041

REACTIONS (4)
  - Muscle strain [None]
  - Device breakage [None]
  - Arthropathy [None]
  - Device connection issue [None]

NARRATIVE: CASE EVENT DATE: 20170706
